FAERS Safety Report 4515315-6 (Version None)
Quarter: 2004Q4

REPORT INFORMATION
  Report Type: 
  Country: None (occurrence: None)
  Receive Date: 20041126
  Receipt Date: 20041112
  Transmission Date: 20050328
  Serious: Yes (Hospitalization)
  Sender: FDA-Public Use
  Company Number: 2004093107

PATIENT
  Age: 6 Month
  Sex: Male

DRUGS (2)
  1. CEFPODOXIME PROXETIL SUSPENSION (CEFPODOXIME PROXETIL) [Suspect]
     Indication: COUGH
     Dosage: ORAL
     Route: 048
     Dates: start: 20041030
  2. ACETAMINOPHEN [Concomitant]

REACTIONS (1)
  - MENINGITIS PNEUMOCOCCAL [None]
